FAERS Safety Report 19680197 (Version 1)
Quarter: 2021Q3

REPORT INFORMATION
  Report Type: Spontaneous
  Country: US (occurrence: US)
  Receive Date: 20210810
  Receipt Date: 20210810
  Transmission Date: 20211014
  Serious: No
  Sender: FDA-Public Use
  Company Number: None

PATIENT
  Age: 76 Year
  Sex: Male

DRUGS (16)
  1. FLUTICASONE NASAL SPRAY [Concomitant]
     Active Substance: FLUTICASONE
  2. GAPAPENTIN 100 MG [Concomitant]
  3. CARVEDILOL 6.25 MG [Concomitant]
     Active Substance: CARVEDILOL
  4. SERTRALINE [Concomitant]
     Active Substance: SERTRALINE HYDROCHLORIDE
  5. JUXTAPID [Suspect]
     Active Substance: LOMITAPIDE MESYLATE
     Indication: HYPERLIPIDAEMIA
     Route: 048
     Dates: start: 20210512
  6. CARVIDOPA/LEVODOPA [Concomitant]
  7. VITAMIN E 400 UNIT [Concomitant]
     Dates: start: 20210512
  8. SPIRONOLACTONE 25 MG [Concomitant]
     Active Substance: SPIRONOLACTONE
  9. JUXTAPID 20MG [Concomitant]
  10. AMLODIPINE [Concomitant]
     Active Substance: AMLODIPINE BESYLATE
  11. LOSARTAN 100 MG [Concomitant]
     Active Substance: LOSARTAN
  12. DOXAZOSIN [Concomitant]
     Active Substance: DOXAZOSIN MESYLATE
  13. OMEGA 3?6?9 1.200 MG [Concomitant]
     Dates: start: 20210512
  14. CILOSTAZOL 50 MG [Concomitant]
  15. MELATONIN [Concomitant]
     Active Substance: MELATONIN
  16. MIRTAZAPINE 15 MG X 2 [Concomitant]

REACTIONS (1)
  - Diarrhoea [None]

NARRATIVE: CASE EVENT DATE: 20210803
